FAERS Safety Report 7949272-7 (Version None)
Quarter: 2011Q4

REPORT INFORMATION
  Report Type: 
  Country: None (occurrence: None)
  Receive Date: 20111130
  Receipt Date: 20111122
  Transmission Date: 20120403
  Serious: Yes (Other)
  Sender: FDA-Public Use
  Company Number: GB-TEVA-310785ISR

PATIENT
  Age: 49 Year
  Sex: Male
  Weight: 78 kg

DRUGS (3)
  1. RANITIDINE [Concomitant]
     Dosage: UNK
     Route: 065
     Dates: start: 20111114
  2. LANSOPRAZOLE [Suspect]
     Dosage: UNK
     Route: 065
     Dates: start: 20111114
  3. OTOMIZE [Concomitant]
     Dosage: UNK
     Route: 065
     Dates: start: 20111114

REACTIONS (1)
  - BALANITIS [None]
